FAERS Safety Report 5076945-9 (Version None)
Quarter: 2006Q3

REPORT INFORMATION
  Report Type: 
  Country: None (occurrence: None)
  Receive Date: 20060810
  Receipt Date: 20060412
  Transmission Date: 20061208
  Serious: Yes (Other)
  Sender: FDA-Public Use
  Company Number: US-SANOFI-SYNTHELABO-A03200602310

PATIENT
  Sex: Male

DRUGS (15)
  1. AMBIEN [Suspect]
     Indication: DRUG USE FOR UNKNOWN INDICATION
     Dosage: TOOK 2 OF THEM, THEN 2 MORE AT 2AM
     Route: 048
     Dates: start: 20060305, end: 20060101
  2. AMBIEN [Suspect]
     Dosage: UNK
     Route: 048
     Dates: end: 20060101
  3. RABEPRAZOLE SODIUM [Concomitant]
     Route: 048
  4. MORPHINE [Concomitant]
     Route: 048
  5. VICODIN [Concomitant]
     Route: 048
  6. PLAVIX [Concomitant]
     Route: 048
  7. MEGACE [Concomitant]
     Route: 048
  8. PROPRANOLOL [Concomitant]
     Route: 048
  9. REMINYL [Concomitant]
     Route: 048
  10. MIRTAZAPINE [Concomitant]
     Dosage: UNK
     Route: 048
  11. CELEBREX [Concomitant]
     Dosage: UNK
     Route: 048
     Dates: start: 20060101
  12. ZOCOR [Concomitant]
     Dosage: UNK
     Route: 048
  13. CATAPRES [Concomitant]
     Dosage: UNK
     Route: 048
  14. HALDOL [Concomitant]
     Dosage: UNK
     Route: 048
  15. RISPERDAL [Concomitant]
     Dosage: UNK
     Route: 048

REACTIONS (15)
  - AMNESIA [None]
  - BALANCE DISORDER [None]
  - CONDITION AGGRAVATED [None]
  - CONTUSION [None]
  - DISORIENTATION [None]
  - DIZZINESS [None]
  - EPISTAXIS [None]
  - FACE INJURY [None]
  - FACIAL BONES FRACTURE [None]
  - FALL [None]
  - HYPERTENSION [None]
  - INTENTIONAL OVERDOSE [None]
  - LOSS OF CONSCIOUSNESS [None]
  - PERIORBITAL HAEMATOMA [None]
  - ROTATOR CUFF SYNDROME [None]
